FAERS Safety Report 4830072-1 (Version None)
Quarter: 2005Q4

REPORT INFORMATION
  Report Type: 
  Country: None (occurrence: None)
  Receive Date: 20051115
  Receipt Date: 20051115
  Transmission Date: 20060501
  Serious: Yes (Hospitalization)
  Sender: FDA-Public Use
  Company Number: None

PATIENT
  Sex: Female
  Weight: 95.2554 kg

DRUGS (1)
  1. TYGACIL [Suspect]
     Indication: OSTEOMYELITIS
     Dosage: 50 MG EVERY 12 HRS IV
     Route: 042
     Dates: start: 20051107, end: 20051114

REACTIONS (1)
  - PANCREATITIS [None]
